FAERS Safety Report 7805987-2 (Version None)
Quarter: 2011Q4

REPORT INFORMATION
  Report Type: 
  Country: None (occurrence: None)
  Receive Date: 20111011
  Receipt Date: 20110928
  Transmission Date: 20120403
  Serious: Yes (Other)
  Sender: FDA-Public Use
  Company Number: BR-RANBAXY-2011R5-48698

PATIENT

DRUGS (1)
  1. CEFUROXIME AXETIL [Suspect]
     Indication: URINARY TRACT INFECTION
     Dosage: 500 MG, BID
     Route: 048
     Dates: start: 20110927, end: 20110927

REACTIONS (5)
  - PERIPHERAL COLDNESS [None]
  - PARAESTHESIA [None]
  - PARAESTHESIA ORAL [None]
  - HYPOAESTHESIA [None]
  - DYSPNOEA [None]
